FAERS Safety Report 22229076 (Version 1)
Quarter: 2023Q2

REPORT INFORMATION
  Report Type: Spontaneous
  Country: FR (occurrence: FR)
  Receive Date: 20230419
  Receipt Date: 20230419
  Transmission Date: 20230721
  Serious: Yes (Hospitalization)
  Sender: FDA-Public Use
  Company Number: FR-AMERICAN REGENT INC-2023000903

PATIENT
  Age: 20 Year
  Sex: Female
  Weight: 55 kg

DRUGS (3)
  1. FERINJECT [Suspect]
     Active Substance: FERRIC CARBOXYMALTOSE
     Indication: Iron deficiency
     Dosage: 500 MILLIGRAM
     Route: 042
     Dates: start: 20230307, end: 20230307
  2. ISOTRETINOIN [Suspect]
     Active Substance: ISOTRETINOIN
     Indication: Acne
     Dosage: 300 MILLIGRAM, 1 IN 1 D (300MG*1X/J)
     Route: 048
     Dates: start: 202212, end: 20230308
  3. TOCILIZUMAB [Suspect]
     Active Substance: TOCILIZUMAB
     Indication: Behcet^s syndrome
     Dosage: 440 MILLIGRAM, 1 IN 1 M
     Route: 042
     Dates: start: 20230301, end: 20230301

REACTIONS (1)
  - Hepatic cytolysis [Recovering/Resolving]

NARRATIVE: CASE EVENT DATE: 20230307
